FAERS Safety Report 4950238-X (Version None)
Quarter: 2006Q1

REPORT INFORMATION
  Report Type: 
  Country: None (occurrence: None)
  Receive Date: 20060315
  Receipt Date: 20060301
  Transmission Date: 20060701
  Serious: Yes (Other)
  Sender: FDA-Public Use
  Company Number: 2006JP000549

PATIENT
  Age: 37 Year
  Sex: Female

DRUGS (2)
  1. TACROLIMUS(TACROLIMUS) FORMULATION UNKNOWN [Suspect]
  2. METHOTREXATE [Concomitant]

REACTIONS (11)
  - ACUTE MYELOID LEUKAEMIA [None]
  - COMPLICATIONS OF BONE MARROW TRANSPLANT [None]
  - CONVULSION [None]
  - DISEASE RECURRENCE [None]
  - ENCEPHALITIS HERPES [None]
  - GRAFT VERSUS HOST DISEASE IN SKIN [None]
  - HEPATIC FAILURE [None]
  - HEPATIC NECROSIS [None]
  - HUMAN HERPESVIRUS 6 INFECTION [None]
  - LIVER DISORDER [None]
  - THERAPY NON-RESPONDER [None]
